FAERS Safety Report 4348398-7 (Version None)
Quarter: 2004Q2

REPORT INFORMATION
  Report Type: 
  Country: None (occurrence: None)
  Receive Date: 20040427
  Receipt Date: 20031229
  Transmission Date: 20050107
  Serious: Yes (Other)
  Sender: FDA-Public Use
  Company Number: US-BRISTOL-MYERS SQUIBB COMPANY-12466421

PATIENT
  Age: 45 Year
  Sex: Female

DRUGS (3)
  1. SERZONE [Suspect]
     Route: 048
     Dates: start: 20000101
  2. CELEXA [Suspect]
     Route: 048
  3. VICODIN [Suspect]

REACTIONS (1)
  - PERICARDIAL EFFUSION [None]
